FAERS Safety Report 11647372 (Version 1)
Quarter: 2015Q4

REPORT INFORMATION
  Report Type: Spontaneous
  Country: US (occurrence: US)
  Receive Date: 20151021
  Receipt Date: 20151021
  Transmission Date: 20160304
  Serious: No
  Sender: FDA-Public Use
  Company Number: US-009507513-1510USA009534

PATIENT
  Age: 30 Year
  Sex: Female

DRUGS (1)
  1. IMPLANON [Suspect]
     Active Substance: ETONOGESTREL
     Dosage: STRENGTH: 68 (UNIT NOT REPORTED);
     Route: 059
     Dates: start: 2010, end: 2013

REACTIONS (3)
  - Menstruation irregular [Unknown]
  - Medical device complication [Unknown]
  - Device breakage [Unknown]
